FAERS Safety Report 4907346-9 (Version None)
Quarter: 2006Q1

REPORT INFORMATION
  Report Type: 
  Country: None (occurrence: None)
  Receive Date: 20060208
  Receipt Date: 20060208
  Transmission Date: 20060701
  Serious: Yes (Hospitalization)
  Sender: FDA-Public Use
  Company Number: None

PATIENT
  Age: 61 Year
  Sex: Male

DRUGS (5)
  1. DIAZEPAM [Suspect]
     Indication: ANXIETY
     Dosage: 5 MG Q4H PRN
     Dates: start: 20050501
  2. TEMAZEPAM [Concomitant]
  3. NPH INSULIN [Concomitant]
  4. OMEPRAZOLE [Concomitant]
  5. FESO4 [Concomitant]

REACTIONS (1)
  - MENTAL STATUS CHANGES [None]
